FAERS Safety Report 20942600 (Version 2)
Quarter: 2022Q3

REPORT INFORMATION
  Report Type: Spontaneous
  Country: US (occurrence: US)
  Receive Date: 20220610
  Receipt Date: 20220721
  Transmission Date: 20221027
  Serious: No
  Sender: FDA-Public Use
  Company Number: US-BRISTOL-MYERS SQUIBB COMPANY-2022-050886

PATIENT
  Age: 76 Year
  Sex: Male

DRUGS (1)
  1. REVLIMID [Suspect]
     Active Substance: LENALIDOMIDE
     Indication: Malignant neoplasm of spinal cord
     Dosage: FREQ: DAILY FOR 14 DAYS FOLLOWED BY 7 DAYS OFF
     Route: 048
     Dates: start: 20140318

REACTIONS (4)
  - Rash [Recovered/Resolved with Sequelae]
  - Restless legs syndrome [Recovered/Resolved]
  - Product dose omission issue [Recovered/Resolved]
  - Intentional product use issue [Unknown]
